FAERS Safety Report 26154070 (Version 1)
Quarter: 2025Q4

REPORT INFORMATION
  Report Type: Spontaneous
  Country: US (occurrence: US)
  Receive Date: 20251215
  Receipt Date: 20251215
  Transmission Date: 20260118
  Serious: No
  Sender: SANOFI AVENTIS
  Company Number: US-SA-2025SA371059

PATIENT
  Age: 5 Year
  Sex: Male
  Weight: 17 kg

DRUGS (3)
  1. DUPIXENT [Suspect]
     Active Substance: DUPILUMAB
     Indication: Dermatitis atopic
     Dosage: 300 MG, Q4W
     Route: 058
     Dates: start: 202506
  2. AMOXICILLIN [Concomitant]
     Active Substance: AMOXICILLIN
     Dosage: UNK
  3. MUPIROCIN [Concomitant]
     Active Substance: MUPIROCIN
     Dosage: UNK

REACTIONS (4)
  - Dry skin [Unknown]
  - Staphylococcal infection [Unknown]
  - Haemorrhage [Unknown]
  - Scab [Unknown]

NARRATIVE: CASE EVENT DATE: 20250101
